FAERS Safety Report 25902942 (Version 2)
Quarter: 2025Q4

REPORT INFORMATION
  Report Type: Report from Study
  Country: CA (occurrence: CA)
  Receive Date: 20251009
  Receipt Date: 20251212
  Transmission Date: 20260118
  Serious: Yes (Hospitalization, Other)
  Sender: JOHNSON AND JOHNSON
  Company Number: CA-JNJFOC-20250605795

PATIENT
  Age: 46 Year
  Sex: Female
  Weight: 60 kg

DRUGS (3)
  1. REMICADE [Suspect]
     Active Substance: INFLIXIMAB
     Indication: Crohn^s disease
     Route: 041
     Dates: start: 202205
  2. REMICADE [Suspect]
     Active Substance: INFLIXIMAB
     Indication: Colitis ulcerative
     Route: 041
     Dates: start: 20221005
  3. REMICADE [Suspect]
     Active Substance: INFLIXIMAB
     Route: 041

REACTIONS (11)
  - Seizure [Recovered/Resolved]
  - Asthenia [Not Recovered/Not Resolved]
  - Fall [Unknown]
  - Speech disorder [Not Recovered/Not Resolved]
  - Venous injury [Unknown]
  - Vitamin B12 deficiency [Recovering/Resolving]
  - Diarrhoea [Recovering/Resolving]
  - Nausea [Recovering/Resolving]
  - Vomiting [Recovering/Resolving]
  - Blood calcium decreased [Unknown]
  - Gait disturbance [Not Recovered/Not Resolved]

NARRATIVE: CASE EVENT DATE: 20250519
